FAERS Safety Report 5275270-0 (Version None)
Quarter: 2007Q1

REPORT INFORMATION
  Report Type: 
  Country: None (occurrence: None)
  Receive Date: 20061213
  Receipt Date: 20050812
  Transmission Date: 20070707
  Serious: No
  Sender: FDA-Public Use
  Company Number: 2005UW12022

PATIENT
  Age: 44 Year
  Sex: Male

DRUGS (1)
  1. SEROQUEL [Suspect]
     Dosage: 200-300 MG DAILY

REACTIONS (2)
  - BLOOD PROLACTIN INCREASED [None]
  - CONVULSION [None]
